FAERS Safety Report 5039950-4 (Version None)
Quarter: 2006Q2

REPORT INFORMATION
  Report Type: 
  Country: None (occurrence: None)
  Receive Date: 20060630
  Receipt Date: 20060623
  Transmission Date: 20061013
  Serious: Yes (Other)
  Sender: FDA-Public Use
  Company Number: US-JNJFOC-20060605456

PATIENT
  Sex: Female
  Weight: 40.37 kg

DRUGS (4)
  1. REMICADE [Suspect]
     Route: 042
  2. REMICADE [Suspect]
     Indication: CROHN'S DISEASE
     Route: 042
  3. 6-MP [Concomitant]
  4. LEVOTHYROXINE SODIUM [Concomitant]

REACTIONS (1)
  - SMALL INTESTINAL RESECTION [None]
